FAERS Safety Report 7871291-X (Version None)
Quarter: 2011Q4

REPORT INFORMATION
  Report Type: 
  Country: None (occurrence: None)
  Receive Date: 20111027
  Receipt Date: 20111017
  Transmission Date: 20120403
  Serious: Yes (Life-Threatening)
  Sender: FDA-Public Use
  Company Number: 1081809

PATIENT
  Age: 32 Year
  Sex: Female

DRUGS (3)
  1. FENTANYL [Suspect]
     Indication: ANALGESIC THERAPY
     Dosage: 100 MCG, INTRAVENOUS DRIP
     Route: 041
  2. ONDANSETRON [Concomitant]
  3. PROPOFOL [Suspect]
     Indication: SEDATION
     Dosage: 1 MG/KG, INTRAVENOUS BOLUS
     Route: 040

REACTIONS (10)
  - EJECTION FRACTION DECREASED [None]
  - NAUSEA [None]
  - RESPIRATORY FAILURE [None]
  - CARDIOGENIC SHOCK [None]
  - OXYGEN SATURATION DECREASED [None]
  - HYPOKINESIA [None]
  - VOMITING [None]
  - HAEMODYNAMIC INSTABILITY [None]
  - SINUS TACHYCARDIA [None]
  - CARDIAC FAILURE [None]
